FAERS Safety Report 19375498 (Version 1)
Quarter: 2021Q2

REPORT INFORMATION
  Report Type: Spontaneous
  Country: CN (occurrence: CN)
  Receive Date: 20210604
  Receipt Date: 20210604
  Transmission Date: 20210717
  Serious: Yes (Other)
  Sender: FDA-Public Use
  Company Number: CN-PFIZER INC-2021585747

PATIENT
  Age: 59 Year
  Sex: Male

DRUGS (2)
  1. VFEND [Suspect]
     Active Substance: VORICONAZOLE
     Indication: INFECTION
     Dosage: 0.2 G, Q12H (EVERY 12 HOURS)
     Route: 041
     Dates: start: 20210511, end: 20210514
  2. SODIUM CHLORIDE. [Concomitant]
     Active Substance: SODIUM CHLORIDE
     Indication: VEHICLE SOLUTION USE
     Dosage: 250 ML, Q12H (EVERY 12 HOURS)
     Route: 041
     Dates: start: 20210511, end: 20210514

REACTIONS (3)
  - Irritability [Recovering/Resolving]
  - Hallucination, visual [Recovering/Resolving]
  - Halo vision [Recovering/Resolving]

NARRATIVE: CASE EVENT DATE: 20210511
